FAERS Safety Report 7382561-6 (Version None)
Quarter: 2011Q1

REPORT INFORMATION
  Report Type: 
  Country: None (occurrence: None)
  Receive Date: 20110329
  Receipt Date: 20110324
  Transmission Date: 20110831
  Serious: Yes (Other)
  Sender: FDA-Public Use
  Company Number: US-BAYER-2011-026365

PATIENT
  Sex: Female

DRUGS (4)
  1. NEXAVAR [Suspect]
     Indication: HEPATIC NEOPLASM MALIGNANT
     Dosage: 400 MG, BID
     Route: 048
     Dates: start: 20110312, end: 20110301
  2. ANALGESICS [Concomitant]
  3. ANTI-DIABETICS [Concomitant]
     Indication: DIABETES MELLITUS
  4. ANTIHYPERTENSIVES [Concomitant]
     Indication: HYPERTENSION

REACTIONS (10)
  - MUSCULOSKELETAL CHEST PAIN [None]
  - CONFUSIONAL STATE [None]
  - VISION BLURRED [None]
  - JOINT INJURY [None]
  - PANCREATIC DISORDER [None]
  - NAUSEA [None]
  - FALL [None]
  - CONTUSION [None]
  - ASTHENIA [None]
  - DISORIENTATION [None]
